FAERS Safety Report 4347373-6 (Version None)
Quarter: 2004Q2

REPORT INFORMATION
  Report Type: 
  Country: None (occurrence: None)
  Receive Date: 20040421
  Receipt Date: 20030905
  Transmission Date: 20050107
  Serious: Yes (Hospitalization)
  Sender: FDA-Public Use
  Company Number: 1553-234

PATIENT
  Sex: Female

DRUGS (1)
  1. DEXFERRUM [Suspect]
     Dosage: 500 MG IV DAILY X 30
     Route: 042
     Dates: start: 20030806, end: 20030902

REACTIONS (1)
  - BLOOD IRON INCREASED [None]
